FAERS Safety Report 5033077-3 (Version None)
Quarter: 2006Q2

REPORT INFORMATION
  Report Type: 
  Country: None (occurrence: None)
  Receive Date: 20060620
  Receipt Date: 20060601
  Transmission Date: 20061013
  Serious: Yes (Other)
  Sender: FDA-Public Use
  Company Number: US200606001601

PATIENT
  Sex: Female
  Weight: 2.4 kg

DRUGS (4)
  1. CYMBALTA [Suspect]
     Dosage: TRANSPLACENTAL
     Route: 064
     Dates: start: 20050701, end: 20060304
  2. PRENATAL (ASCORBIC ACID, CALCIUM GLUCONATE, CUPRIC CARBONATE, BASIC, C [Concomitant]
  3. VICODIN [Concomitant]
  4. AMBIEN [Concomitant]

REACTIONS (5)
  - CONGENITAL HYDRONEPHROSIS [None]
  - DRUG EXPOSURE DURING PREGNANCY [None]
  - NEONATAL DISORDER [None]
  - PELVI-URETERIC OBSTRUCTION [None]
  - PREMATURE BABY [None]
